FAERS Safety Report 19182850 (Version 4)
Quarter: 2021Q3

REPORT INFORMATION
  Report Type: Other
  Country: JP (occurrence: JP)
  Receive Date: 20210426
  Receipt Date: 20210915
  Transmission Date: 20211014
  Serious: Yes (Death, Hospitalization)
  Sender: FDA-Public Use
  Company Number: JP-ROCHE-2815644

PATIENT
  Age: 83 Year
  Sex: Male

DRUGS (7)
  1. ENTRECTINIB [Suspect]
     Active Substance: ENTRECTINIB
     Route: 048
  2. ENTRECTINIB [Suspect]
     Active Substance: ENTRECTINIB
     Dosage: DOSE INTERVAL UNCERTAINTY
     Route: 048
     Dates: start: 202104
  3. ENTRECTINIB [Suspect]
     Active Substance: ENTRECTINIB
     Route: 048
  4. ENTRECTINIB [Suspect]
     Active Substance: ENTRECTINIB
     Indication: NON-SMALL CELL LUNG CANCER
     Route: 048
     Dates: start: 20210323, end: 202104
  5. ENTRECTINIB [Suspect]
     Active Substance: ENTRECTINIB
     Route: 048
     Dates: start: 202105
  6. LASIX [Concomitant]
     Active Substance: FUROSEMIDE
     Indication: MALIGNANT ASCITES
     Dosage: DOSAGE IS UNCERTAIN.
     Route: 065
  7. TRAMCET [Concomitant]
     Active Substance: ACETAMINOPHEN\TRAMADOL
     Indication: MALIGNANT ASCITES
     Dosage: DOSAGE IS UNCERTAIN.
     Route: 065

REACTIONS (6)
  - Pyrexia [Unknown]
  - Renal impairment [Fatal]
  - Pleural effusion [Recovering/Resolving]
  - Blood creatinine increased [Unknown]
  - Urinary tract infection [Not Recovered/Not Resolved]
  - Dizziness [Unknown]

NARRATIVE: CASE EVENT DATE: 20210405
